FAERS Safety Report 11448867 (Version 3)
Quarter: 2015Q3

REPORT INFORMATION
  Report Type: Spontaneous
  Country: US (occurrence: None)
  Receive Date: 20150902
  Receipt Date: 20150924
  Transmission Date: 20151125
  Serious: Yes (Other)
  Sender: FDA-Public Use
  Company Number: US-MDT-ADR-2015-01681

PATIENT
  Age: 56 Year
  Sex: Female

DRUGS (2)
  1. LIDOCAINE INTRATHECAL [Suspect]
     Active Substance: LIDOCAINE
  2. BACLOFEN INTRATHECAL [Suspect]
     Active Substance: BACLOFEN

REACTIONS (27)
  - Pain of skin [None]
  - Insomnia [None]
  - Pain [None]
  - Paradoxical drug reaction [None]
  - Pain in extremity [None]
  - Discomfort [None]
  - Sedation [None]
  - Weight increased [None]
  - Memory impairment [None]
  - Muscular weakness [None]
  - Drug ineffective [None]
  - Burning sensation [None]
  - Back pain [None]
  - Body temperature increased [None]
  - Therapeutic response unexpected [None]
  - Fear [None]
  - Incision site pain [None]
  - Inadequate analgesia [None]
  - Pruritus [None]
  - Depression [None]
  - Medical device site pain [None]
  - Performance status decreased [None]
  - Nerve injury [None]
  - Medical device site swelling [None]
  - Confusional state [None]
  - Psychomotor hyperactivity [None]
  - Neuropathy peripheral [None]
